FAERS Safety Report 9441511 (Version 1)
Quarter: 2013Q3

REPORT INFORMATION
  Report Type: Report from Study
  Country: CN (occurrence: CN)
  Receive Date: 20130805
  Receipt Date: 20130805
  Transmission Date: 20140515
  Serious: Yes (Death, Hospitalization)
  Sender: FDA-Public Use
  Company Number: CN-MYLANLABS-2013S1016335

PATIENT
  Sex: 0

DRUGS (2)
  1. CISPLATIN [Suspect]
     Indication: CERVIX CARCINOMA
     Dosage: 1 COURSE
     Route: 064
  2. FLUOROURACIL [Suspect]
     Indication: CERVIX CARCINOMA
     Dosage: 1 COURSE
     Route: 064

REACTIONS (2)
  - Neonatal respiratory distress syndrome [Fatal]
  - Foetal exposure during pregnancy [Fatal]
